FAERS Safety Report 13819141 (Version 1)
Quarter: 2017Q3

REPORT INFORMATION
  Report Type: Spontaneous
  Country: TR (occurrence: TR)
  Receive Date: 20170731
  Receipt Date: 20170731
  Transmission Date: 20171127
  Serious: Yes (Disabling)
  Sender: FDA-Public Use
  Company Number: TR-BAUSCH-BL-2017-022421

PATIENT
  Age: 30 Year
  Sex: Female

DRUGS (1)
  1. BENZAMYCIN [Suspect]
     Active Substance: BENZOYL PEROXIDE\ERYTHROMYCIN
     Indication: ACNE
     Dosage: AT ONCE DAILY AND TWICE DAILY FREQUENCY
     Route: 003
     Dates: start: 20170617, end: 20170618

REACTIONS (4)
  - Swelling face [Recovered/Resolved]
  - Erythema [Recovered/Resolved]
  - Pruritus [Recovered/Resolved]
  - Rash [Recovered/Resolved]

NARRATIVE: CASE EVENT DATE: 20170618
